FAERS Safety Report 23343627 (Version 1)
Quarter: 2023Q4

REPORT INFORMATION
  Report Type: Spontaneous
  Country: US (occurrence: US)
  Receive Date: 20231227
  Receipt Date: 20231227
  Transmission Date: 20240110
  Serious: No
  Sender: FDA-Public Use
  Company Number: US-PFIZER INC-202300452580

PATIENT
  Age: 61 Year
  Sex: Female
  Weight: 56.7 kg

DRUGS (2)
  1. LITFULO [Suspect]
     Active Substance: RITLECITINIB TOSYLATE
     Indication: Alopecia areata
     Dosage: 50MG, 1 CAPSULE, ONE TIME A DAY
     Dates: start: 202311
  2. ESTROGENS [Concomitant]
     Active Substance: ESTROGENS
     Dosage: DAILY ESTROGEN, 2 OF THOSE MEDICATION

REACTIONS (5)
  - Urticaria [Recovered/Resolved]
  - Pruritus [Recovered/Resolved]
  - Erythema [Recovered/Resolved]
  - Skin mass [Recovered/Resolved]
  - Dermatitis allergic [Recovered/Resolved]

NARRATIVE: CASE EVENT DATE: 20231218
